FAERS Safety Report 11509825 (Version 1)
Quarter: 2015Q3

REPORT INFORMATION
  Report Type: Spontaneous
  Country: US (occurrence: US)
  Receive Date: 20150915
  Receipt Date: 20150915
  Transmission Date: 20151125
  Serious: No
  Sender: FDA-Public Use
  Company Number: US-JNJFOC-20150902489

PATIENT
  Age: 47 Year
  Sex: Female
  Weight: 63.5 kg

DRUGS (1)
  1. TYLENOL EXTRA STRENGTH [Suspect]
     Active Substance: ACETAMINOPHEN
     Indication: HEADACHE
     Dosage: 2X WITHIN A HOUR,(TOOK 2 AROUND 3 PM AND 2 MORE AROUND 4 PM AS FORGOT THAT SHE HAD TAKEN THEM)
     Route: 048
     Dates: start: 20150902, end: 20150902

REACTIONS (1)
  - Extra dose administered [Unknown]
